FAERS Safety Report 8260489-7 (Version None)
Quarter: 2012Q2

REPORT INFORMATION
  Report Type: 
  Country: None (occurrence: None)
  Receive Date: 20120404
  Receipt Date: 20120321
  Transmission Date: 20120825
  Serious: Yes (Other)
  Sender: FDA-Public Use
  Company Number: FR-RANBAXY-2011US-49777

PATIENT
  Age: 45 Year
  Sex: Male

DRUGS (1)
  1. CIPROFLOXACIN [Suspect]
     Indication: BRONCHOPNEUMONIA
     Dosage: 800 MG, QD
     Route: 065

REACTIONS (1)
  - EPICONDYLITIS [None]
